FAERS Safety Report 10422764 (Version 1)
Quarter: 2014Q3

REPORT INFORMATION
  Report Type: Report from Study
  Country: US (occurrence: US)
  Receive Date: 20140902
  Receipt Date: 20140902
  Transmission Date: 20150326
  Serious: Yes (Other)
  Sender: FDA-Public Use
  Company Number: US-ROCHE-1454118

PATIENT

DRUGS (5)
  1. TRASTUZUMAB [Suspect]
     Active Substance: TRASTUZUMAB
     Indication: HER-2 POSITIVE BREAST CANCER
     Dosage: 4 MG/KG) FOLLOWED 1 WEEK LATER BY A MAINTENANCE DOSE OF 2 MG/KG.
     Route: 042
  2. TRASTUZUMAB [Suspect]
     Active Substance: TRASTUZUMAB
     Indication: PANCREATIC CARCINOMA
  3. IL-12 [Suspect]
     Active Substance: INTERLEUKIN-12 HUMAN RECOMBINANT
     Indication: BREAST CANCER
     Dosage: 30, 100, 300, 500 NG/KG
     Route: 042
  4. TRASTUZUMAB [Suspect]
     Active Substance: TRASTUZUMAB
     Indication: CERVIX CARCINOMA
  5. IL-12 [Suspect]
     Active Substance: INTERLEUKIN-12 HUMAN RECOMBINANT
     Indication: PANCREATIC CARCINOMA

REACTIONS (3)
  - Lymphopenia [Unknown]
  - Hepatic enzyme abnormal [Unknown]
  - White blood cell count abnormal [Unknown]
